FAERS Safety Report 7262946-9 (Version None)
Quarter: 2011Q1

REPORT INFORMATION
  Report Type: 
  Country: None (occurrence: None)
  Receive Date: 20110130
  Receipt Date: 20101015
  Transmission Date: 20110831
  Serious: No
  Sender: FDA-Public Use
  Company Number: US-ABBOTT-10P-163-0678733-00

PATIENT
  Age: 38 Year
  Sex: Male

DRUGS (7)
  1. CULTUREL PROBIOTIC [Concomitant]
     Indication: GASTROINTESTINAL DISORDER
  2. NEXIUM [Concomitant]
     Indication: CROHN'S DISEASE
  3. AMBIEN [Concomitant]
     Indication: INSOMNIA
     Dosage: AT NIGHT
  4. HUMIRA [Suspect]
     Indication: CROHN'S DISEASE
     Dates: start: 20100501
  5. VERAPAMIL [Concomitant]
     Indication: CLUSTER HEADACHE
  6. ATIVAN [Concomitant]
     Indication: ANXIETY
  7. MULTI-VITAMIN [Concomitant]
     Indication: PRODUCT USED FOR UNKNOWN INDICATION

REACTIONS (1)
  - MASS [None]
